FAERS Safety Report 8268208-5 (Version None)
Quarter: 2012Q2

REPORT INFORMATION
  Report Type: 
  Country: None (occurrence: None)
  Receive Date: 20120409
  Receipt Date: 20120328
  Transmission Date: 20120825
  Serious: Yes (Hospitalization)
  Sender: FDA-Public Use
  Company Number: GB-ROCHE-1054120

PATIENT
  Sex: Female
  Weight: 54 kg

DRUGS (3)
  1. MABTHERA [Suspect]
     Indication: RHEUMATOID ARTHRITIS
     Dosage: LAST DOSE PRIOR TO EVENT 02/JUN/2010
     Dates: start: 20090623
  2. METHOTREXATE [Concomitant]
  3. HYDROXYCHLOROQUINE SULFATE [Concomitant]
     Dates: start: 20100831

REACTIONS (1)
  - PERICARDIAL EFFUSION [None]
